FAERS Safety Report 8515209-5 (Version None)
Quarter: 2012Q3

REPORT INFORMATION
  Report Type: 
  Country: None (occurrence: None)
  Receive Date: 20120717
  Receipt Date: 20120716
  Transmission Date: 20120928
  Serious: Yes (Other)
  Sender: FDA-Public Use
  Company Number: DE-GLAXOSMITHKLINE-D0076109A

PATIENT
  Sex: Male

DRUGS (3)
  1. POTIGA [Suspect]
     Indication: PARTIAL SEIZURES
     Dosage: 100MG THREE TIMES PER DAY
     Route: 048
  2. VIMPAT [Concomitant]
     Indication: PARTIAL SEIZURES
     Dosage: 200MG PER DAY
     Route: 048
  3. MULTIPLE DRUGS [Concomitant]
     Route: 065

REACTIONS (3)
  - CONVULSION [None]
  - CONDITION AGGRAVATED [None]
  - DRUG INEFFECTIVE [None]
